FAERS Safety Report 6264108-0 (Version None)
Quarter: 2009Q3

REPORT INFORMATION
  Report Type: 
  Country: None (occurrence: None)
  Receive Date: 20090710
  Receipt Date: 20090630
  Transmission Date: 20100115
  Serious: No
  Sender: FDA-Public Use
  Company Number: DE-ELI_LILLY_AND_COMPANY-DE200907000072

PATIENT
  Sex: Male

DRUGS (7)
  1. CYMBALTA [Suspect]
     Dosage: 1-0-1
     Route: 048
  2. URSO FALK [Concomitant]
     Dosage: UNK, UNKNOWN
     Route: 065
  3. FOLIC ACID [Concomitant]
     Dosage: 500 MG, UNKNOWN
     Route: 065
  4. NEXIUM [Concomitant]
     Dosage: 40 MG, UNKNOWN
     Route: 065
  5. OLMETEC [Concomitant]
     Dosage: 20 MG, UNKNOWN
     Route: 065
  6. RASILEZ [Concomitant]
     Dosage: 300 MG, UNKNOWN
     Route: 065
  7. INEGY [Concomitant]
     Dosage: 10 MG, UNKNOWN
     Route: 065

REACTIONS (3)
  - GAMMA-GLUTAMYLTRANSFERASE INCREASED [None]
  - LIVER FUNCTION TEST ABNORMAL [None]
  - TRANSAMINASES INCREASED [None]
